FAERS Safety Report 11912673 (Version 1)
Quarter: 2016Q1

REPORT INFORMATION
  Report Type: Spontaneous
  Country: None (occurrence: None)
  Receive Date: 20160112
  Receipt Date: 20160112
  Transmission Date: 20160526
  Serious: Yes (Other)
  Sender: FDA-Public Use
  Company Number: None

PATIENT
  Age: 67 Year
  Sex: Male

DRUGS (1)
  1. SIMVASTATIN 40MG ACCORD HEALTH [Suspect]
     Active Substance: SIMVASTATIN
     Indication: BLOOD CHOLESTEROL
     Dosage: QHS/BEDTIME ORAL
     Route: 048

REACTIONS (5)
  - Product substitution issue [None]
  - Erythema [None]
  - Swelling [None]
  - Feeling cold [None]
  - Skin disorder [None]

NARRATIVE: CASE EVENT DATE: 20160111
